FAERS Safety Report 20291398 (Version 2)
Quarter: 2022Q1

REPORT INFORMATION
  Report Type: Spontaneous
  Country: CN (occurrence: CN)
  Receive Date: 20220104
  Receipt Date: 20220223
  Transmission Date: 20220423
  Serious: Yes (Disabling, Other)
  Sender: FDA-Public Use
  Company Number: CN-ALLERGAN-2144648US

PATIENT
  Sex: Female

DRUGS (1)
  1. MEMANTINE [Suspect]
     Active Substance: MEMANTINE
     Indication: Product used for unknown indication

REACTIONS (3)
  - Disability [Unknown]
  - Loss of consciousness [Unknown]
  - Product quality issue [Unknown]
